FAERS Safety Report 11898740 (Version 1)
Quarter: 2016Q1

REPORT INFORMATION
  Report Type: Spontaneous
  Country: US (occurrence: None)
  Receive Date: 20160107
  Receipt Date: 20160107
  Transmission Date: 20160526
  Serious: Yes (Other)
  Sender: FDA-Public Use
  Company Number: None

PATIENT
  Age: 57 Year
  Sex: Female
  Weight: 70.5 kg

DRUGS (5)
  1. DURAGESIC [Suspect]
     Active Substance: FENTANYL
     Indication: ARTHRALGIA
     Dosage: 100 MCG 1 PATCH EVERY 3 DAYS BILATERAL UPPER ARM
     Dates: start: 201510, end: 20151214
  2. VOLTAREN 1% GEL [Concomitant]
  3. LYRICA [Concomitant]
     Active Substance: PREGABALIN
  4. TRAMADOL HCL [Concomitant]
     Active Substance: TRAMADOL HYDROCHLORIDE
  5. DURAGESIC [Suspect]
     Active Substance: FENTANYL
     Indication: NEPHROLITHIASIS
     Dosage: 75MCG 1 PATCH EVERY 3 DAYS BILATERAL UPPER ARM

REACTIONS (5)
  - Application site pain [None]
  - Application site pruritus [None]
  - Application site rash [None]
  - Rash [None]
  - Product substitution issue [None]

NARRATIVE: CASE EVENT DATE: 20151016
